FAERS Safety Report 14003084 (Version 1)
Quarter: 2017Q3

REPORT INFORMATION
  Report Type: Spontaneous
  Country: CH (occurrence: CH)
  Receive Date: 20170922
  Receipt Date: 20170922
  Transmission Date: 20171128
  Serious: Yes (Other)
  Sender: FDA-Public Use
  Company Number: CH-B.I. PHARMACEUTICALS,INC./RIDGEFIELD-2016-BI-079644

PATIENT
  Sex: Male

DRUGS (6)
  1. JARDIANCE [Suspect]
     Active Substance: EMPAGLIFLOZIN
     Indication: DIABETES MELLITUS
     Route: 065
  2. ZANIDIP [Suspect]
     Active Substance: LERCANIDIPINE HYDROCHLORIDE
     Indication: PRODUCT USED FOR UNKNOWN INDICATION
     Route: 065
  3. BILAXTEN [Suspect]
     Active Substance: BILASTINE
     Dosage: UPTO 4 FOLD DOSAGE
     Route: 065
  4. BILAXTEN [Suspect]
     Active Substance: BILASTINE
     Indication: URTICARIA CHRONIC
     Route: 048
  5. BILAXTEN [Suspect]
     Active Substance: BILASTINE
     Route: 048
  6. SORTIS [Suspect]
     Active Substance: ATORVASTATIN
     Indication: PRODUCT USED FOR UNKNOWN INDICATION
     Route: 048

REACTIONS (4)
  - Overdose [Not Recovered/Not Resolved]
  - Drug ineffective [Unknown]
  - Lichen sclerosus [Unknown]
  - Phimosis [Unknown]
